FAERS Safety Report 4740856-6 (Version None)
Quarter: 2005Q3

REPORT INFORMATION
  Report Type: 
  Country: None (occurrence: None)
  Receive Date: 20050810
  Receipt Date: 20041221
  Transmission Date: 20060218
  Serious: No
  Sender: FDA-Public Use
  Company Number: US-GLAXOSMITHKLINE-A0538170A

PATIENT
  Age: 76 Year
  Sex: Male

DRUGS (1)
  1. TAGAMET HB 200 [Suspect]
     Dates: start: 20041125, end: 20041219

REACTIONS (3)
  - BLOOD PRESSURE INCREASED [None]
  - FLUSHING [None]
  - HEART RATE INCREASED [None]
